FAERS Safety Report 8130434-3 (Version None)
Quarter: 2012Q1

REPORT INFORMATION
  Report Type: 
  Country: None (occurrence: None)
  Receive Date: 20120210
  Receipt Date: 20120201
  Transmission Date: 20120608
  Serious: Yes (Hospitalization, Other)
  Sender: FDA-Public Use
  Company Number: DE-ABBOTT-11P-062-0884123-00

PATIENT
  Sex: Male

DRUGS (2)
  1. ANALGESIC [Concomitant]
     Indication: PRODUCT USED FOR UNKNOWN INDICATION
  2. HUMIRA [Suspect]
     Indication: CROHN'S DISEASE
     Route: 058
     Dates: start: 20111006, end: 20111201

REACTIONS (7)
  - WOUND DEHISCENCE [None]
  - INTESTINAL RESECTION [None]
  - GASTRIC OPERATION [None]
  - GASTROINTESTINAL INFLAMMATION [None]
  - WOUND INFECTION BACTERIAL [None]
  - GASTROINTESTINAL STENOSIS [None]
  - CONDITION AGGRAVATED [None]
